FAERS Safety Report 21265556 (Version 1)
Quarter: 2022Q3

REPORT INFORMATION
  Report Type: Spontaneous
  Country: US (occurrence: None)
  Receive Date: 20220827
  Receipt Date: 20220827
  Transmission Date: 20221026
  Serious: Yes (Other)
  Sender: FDA-Public Use
  Company Number: None

PATIENT
  Age: 45 Year
  Sex: Female
  Weight: 49.5 kg

DRUGS (7)
  1. DEXTROAMPHET SACCHARAT, AMPHET ASPARTATE, DEXTROAMPHET SULFATE AND AMP [Suspect]
     Active Substance: AMPHETAMINE ASPARTATE\AMPHETAMINE SULFATE\DEXTROAMPHETAMINE SACCHARATE\DEXTROAMPHETAMINE SULFATE
     Indication: Attention deficit hyperactivity disorder
     Dosage: OTHER QUANTITY : 1 TABLET(S);?FREQUENCY : 3 TIMES A DAY;?
     Route: 048
  2. VITAMIN C [Concomitant]
     Active Substance: ASCORBIC ACID
  3. VITAMIN D [Concomitant]
     Active Substance: VITAMIN D NOS
  4. COLLAGEN [Concomitant]
     Active Substance: COLLAGEN
  5. SEAMOSS [Concomitant]
  6. VITAMINS [Concomitant]
     Active Substance: VITAMINS
  7. XANAX [Concomitant]
     Active Substance: ALPRAZOLAM

REACTIONS (9)
  - Product substitution issue [None]
  - Abdominal pain upper [None]
  - Headache [None]
  - Irritability [None]
  - Depression [None]
  - Fatigue [None]
  - Emotional distress [None]
  - Product complaint [None]
  - Product availability issue [None]

NARRATIVE: CASE EVENT DATE: 20220825
